FAERS Safety Report 7141276-X (Version None)
Quarter: 2010Q4

REPORT INFORMATION
  Report Type: 
  Country: None (occurrence: None)
  Receive Date: 20101122
  Receipt Date: 20101115
  Transmission Date: 20110411
  Serious: Yes (Life-Threatening)
  Sender: FDA-Public Use
  Company Number: 201011AGG00960

PATIENT

DRUGS (1)
  1. TIROFIBAN HYDROCHLORIDE (AGGRASTAT (TIROFIBAN HYDROCHLORIDE)) [Suspect]

REACTIONS (1)
  - OVERDOSE [None]
